FAERS Safety Report 22222757 (Version 1)
Quarter: 2023Q2

REPORT INFORMATION
  Report Type: Other
  Country: None (occurrence: US)
  Receive Date: 20230418
  Receipt Date: 20230418
  Transmission Date: 20230722
  Serious: Yes (Death, Other)
  Sender: FDA-Public Use
  Company Number: US-BIOLOGICAL E. LTD-2140502

PATIENT
  Age: 86 Year
  Sex: Male

DRUGS (2)
  1. HEPARIN SODIUM [Suspect]
     Active Substance: HEPARIN SODIUM
     Indication: Cardiac failure
     Route: 042
  2. APIXABAN [Concomitant]
     Active Substance: APIXABAN
     Route: 065

REACTIONS (2)
  - Cardiogenic shock [Fatal]
  - Drug ineffective [Fatal]
